FAERS Safety Report 14067545 (Version 25)
Quarter: 2020Q1

REPORT INFORMATION
  Report Type: Spontaneous
  Country: US (occurrence: US)
  Receive Date: 20171009
  Receipt Date: 20200130
  Transmission Date: 20200409
  Serious: Yes (Death, Hospitalization)
  Sender: FDA-Public Use
  Company Number: US-ACTELION-A-NJ2017-160418

PATIENT
  Age: 41 Year
  Sex: Female
  Weight: 59.86 kg

DRUGS (5)
  1. OPSUMIT [Suspect]
     Active Substance: MACITENTAN
     Indication: PULMONARY ARTERIAL HYPERTENSION
     Dosage: 10 MG, QD
     Route: 048
  2. XARELTO [Concomitant]
     Active Substance: RIVAROXABAN
  3. ADCIRCA [Concomitant]
     Active Substance: TADALAFIL
  4. FLOLAN [Concomitant]
     Active Substance: EPOPROSTENOL SODIUM
     Dosage: 88 NG/KG, PER MIN
  5. OPSUMIT [Suspect]
     Active Substance: MACITENTAN
     Dosage: 10 MG, QD
     Route: 048

REACTIONS (26)
  - Cor pulmonale [Unknown]
  - Syncope [Unknown]
  - Pneumothorax [Unknown]
  - Unevaluable event [Unknown]
  - Blood count abnormal [Unknown]
  - Abdominal pain upper [Unknown]
  - Mental status changes [Unknown]
  - Anaemia [Unknown]
  - Haemoglobin decreased [Unknown]
  - Hypotension [Unknown]
  - Unresponsive to stimuli [Unknown]
  - Upper respiratory tract infection [Unknown]
  - Chest pain [Unknown]
  - Transplant [Unknown]
  - Death [Fatal]
  - Pericardial effusion [Unknown]
  - Emergency care [Unknown]
  - Haemorrhage [Unknown]
  - Heart rate increased [Unknown]
  - Device alarm issue [Unknown]
  - Hospitalisation [Unknown]
  - Pulmonary arterial hypertension [Unknown]
  - Pulmonary hypertension [Unknown]
  - Device physical property issue [Unknown]
  - Paracentesis [Unknown]
  - Epistaxis [Unknown]

NARRATIVE: CASE EVENT DATE: 20171009
